FAERS Safety Report 22069126 (Version 3)
Quarter: 2024Q2

REPORT INFORMATION
  Report Type: Spontaneous
  Country: FR (occurrence: FR)
  Receive Date: 20230307
  Receipt Date: 20240404
  Transmission Date: 20240716
  Serious: Yes (Death)
  Sender: FDA-Public Use
  Company Number: None

PATIENT
  Age: 67 Year
  Sex: Male
  Weight: 66.5 kg

DRUGS (6)
  1. CISPLATIN [Suspect]
     Active Substance: CISPLATIN
     Indication: Tonsil cancer
     Dosage: 34 MILLIGRAM, QD
     Route: 042
     Dates: start: 20230123, end: 20230127
  2. GEMCITABINE [Suspect]
     Active Substance: GEMCITABINE
     Indication: Tonsil cancer
     Dosage: UNK
     Route: 042
     Dates: start: 20230123, end: 20230127
  3. VINORELBINE TARTRATE [Suspect]
     Active Substance: VINORELBINE TARTRATE
     Indication: Tonsil cancer
     Dosage: UNK
     Route: 042
     Dates: start: 20230123, end: 20230127
  4. DOCETAXEL [Suspect]
     Active Substance: DOCETAXEL\DOCETAXEL ANHYDROUS
     Indication: Tonsil cancer
     Dosage: UNK
     Route: 042
     Dates: start: 20230123, end: 20230127
  5. DOCETAXEL [Suspect]
     Active Substance: DOCETAXEL\DOCETAXEL ANHYDROUS
     Dosage: 129 MILLIGRAM
     Route: 042
     Dates: start: 20230125, end: 20230125
  6. FLUOROURACIL [Suspect]
     Active Substance: FLUOROURACIL
     Indication: Tonsil cancer
     Dosage: 2550 MILLIGRAM
     Route: 042
     Dates: start: 20230123, end: 20230125

REACTIONS (5)
  - Circulatory collapse [Fatal]
  - Thrombocytopenia [Fatal]
  - Leukopenia [Fatal]
  - Bone marrow failure [Fatal]
  - Colitis [Fatal]

NARRATIVE: CASE EVENT DATE: 20230130
